FAERS Safety Report 11459037 (Version 2)
Quarter: 2015Q4

REPORT INFORMATION
  Report Type: Spontaneous
  Country: US (occurrence: US)
  Receive Date: 20150904
  Receipt Date: 20151109
  Transmission Date: 20160304
  Serious: Yes (Other)
  Sender: FDA-Public Use
  Company Number: US-PFIZER INC-2015283473

PATIENT
  Age: 66 Year
  Sex: Female
  Weight: 93 kg

DRUGS (16)
  1. IBRANCE [Suspect]
     Active Substance: PALBOCICLIB
     Indication: BREAST CANCER STAGE IV
     Dosage: 1 DF, CYCLIC (21 DAYS AND THEN 10 DAYS OFF)
     Dates: start: 20150731
  2. COENZYME Q10 [Concomitant]
     Active Substance: UBIDECARENONE
     Dosage: 100 MG, DAILY
     Route: 048
  3. VITAMIN B COMPLEX [Concomitant]
     Active Substance: CYANOCOBALAMIN\DEXPANTHENOL\NIACINAMIDE\PYRIDOXINE HYDROCHLORIDE\RIBOFLAVIN 5^-PHOSPHATE SODIUM\THIAMINE HYDROCHLORIDE\VITAMIN B COMPLEX
     Dosage: 40 MG, DAILY
     Route: 048
  4. D3 [Concomitant]
     Active Substance: 25-HYDROXYCHOLECALCIFEROL, 5-TRANS-
     Dosage: 500 MG, DAILY
     Route: 048
  5. BIOTIN [Concomitant]
     Active Substance: BIOTIN
     Dosage: 5000 MG, DAILY
     Route: 048
  6. CALCIUM W/MAGNESIUM [Concomitant]
     Active Substance: CALCIUM\MAGNESIUM
     Dosage: UNK UNK, 1X/DAY
     Route: 048
  7. NABUMETONE. [Concomitant]
     Active Substance: NABUMETONE
     Dosage: 750 MG, 1X/DAY
     Route: 048
  8. CURCUMIN [Concomitant]
     Active Substance: CURCUMIN
     Indication: ARTHRALGIA
     Dosage: 400 MG, 1X/DAY
     Route: 048
  9. VITAMIN C [Concomitant]
     Active Substance: ASCORBIC ACID
     Dosage: 2000 MG, DAILY
     Route: 048
  10. LETROZOLE. [Concomitant]
     Active Substance: LETROZOLE
     Indication: HORMONE LEVEL ABNORMAL
     Dosage: 2.5 MG, 1X/DAY
     Route: 048
  11. CARLSON^S FISH OIL [Concomitant]
     Dosage: 1000 MG, 2X/DAY (ONCE IN MORNING AND ONCE IN EVENING)
  12. TRIAMTERENE AND HYDROCHLOROTHIAZIDE [Concomitant]
     Active Substance: HYDROCHLOROTHIAZIDE\TRIAMTERENE
     Dosage: [TRIAMTERENE 25MG]/[HYDROCHLOROTHIAZIDE 37.5MG], 1X/DAY
     Route: 048
  13. ZOMETA [Concomitant]
     Active Substance: ZOLEDRONIC ACID
     Indication: SUPPLEMENTATION THERAPY
     Dosage: MONTHLY
  14. VITAMIN B12 [Concomitant]
     Active Substance: CYANOCOBALAMIN
     Dosage: 60 MG, DAILY DROPS
     Route: 048
  15. VALSARTAN. [Concomitant]
     Active Substance: VALSARTAN
     Dosage: 40 MG, 1X/DAY
     Route: 048
  16. METOPROLOL SUCCINATE. [Concomitant]
     Active Substance: METOPROLOL SUCCINATE
     Dosage: 50 MG, 1X/DAY

REACTIONS (7)
  - Eye swelling [Unknown]
  - White blood cell count decreased [Recovering/Resolving]
  - Fatigue [Unknown]
  - Musculoskeletal stiffness [Unknown]
  - Balance disorder [Unknown]
  - Vision blurred [Recovering/Resolving]
  - Asthenopia [Unknown]

NARRATIVE: CASE EVENT DATE: 201508
